FAERS Safety Report 23272154 (Version 5)
Quarter: 2024Q4

REPORT INFORMATION
  Report Type: Report from Study
  Country: US (occurrence: US)
  Receive Date: 20231207
  Receipt Date: 20241008
  Transmission Date: 20250115
  Serious: Yes (Other)
  Sender: AGIOS PHARMACEUTICALS
  Company Number: US-AGIOS-2312US03562

PATIENT
  Age: 52 Year
  Sex: Male
  Weight: 77.098 kg

DRUGS (3)
  1. MITAPIVAT [Suspect]
     Active Substance: MITAPIVAT
     Indication: Pyruvate kinase deficiency anaemia
     Dosage: 50 MILLIGRAM, BID
     Route: 048
     Dates: start: 20220623
  2. RIZATRIPTAN [Concomitant]
     Active Substance: RIZATRIPTAN
     Indication: Headache
     Dosage: 0.1 MILLIGRAM
     Route: 065
  3. TOPIRAMATE [Concomitant]
     Active Substance: TOPIRAMATE
     Indication: Headache
     Route: 065

REACTIONS (17)
  - Neuropathy peripheral [Unknown]
  - Haemoglobin decreased [Unknown]
  - Back pain [Unknown]
  - Pain [Unknown]
  - Headache [Unknown]
  - Fatigue [Unknown]
  - Dysphagia [Unknown]
  - Ankle fracture [Unknown]
  - Ear pain [Unknown]
  - Ear discomfort [Unknown]
  - Malaise [Unknown]
  - Migraine [Unknown]
  - Thyroid disorder [Unknown]
  - Myalgia [Not Recovered/Not Resolved]
  - Haematocrit abnormal [Unknown]
  - Blood bilirubin abnormal [Unknown]
  - Neck pain [Unknown]

NARRATIVE: CASE EVENT DATE: 20231101
